FAERS Safety Report 9258216 (Version 1)
Quarter: 2013Q2

REPORT INFORMATION
  Report Type: Spontaneous
  Country: CA (occurrence: CA)
  Receive Date: 20130426
  Receipt Date: 20130426
  Transmission Date: 20140414
  Serious: Yes (Other)
  Sender: FDA-Public Use
  Company Number: CA-AMGEN-CANSP2013028434

PATIENT
  Age: 60 Year
  Sex: Female

DRUGS (10)
  1. ENBREL [Suspect]
     Indication: PRODUCT USED FOR UNKNOWN INDICATION
     Dosage: UNK
     Dates: start: 20111114
  2. PREDNISONE [Concomitant]
     Dosage: UNK
  3. LEFLUNOMIDE [Concomitant]
     Dosage: UNK
  4. ACTONEL [Concomitant]
     Dosage: UNK
  5. CRESTOR [Concomitant]
     Dosage: UNK
  6. HYDROCHLOROTHIAZIDE [Concomitant]
     Dosage: UNK
  7. ADALAT [Concomitant]
     Dosage: UNK
  8. NASONEX [Concomitant]
     Dosage: UNK
  9. DICLOFENAC [Concomitant]
     Dosage: UNK
     Route: 061
  10. METOPROLOL [Concomitant]
     Dosage: UNK

REACTIONS (4)
  - Arthropathy [Unknown]
  - Injection site pain [Unknown]
  - Injection site rash [Unknown]
  - Injection site erythema [Unknown]
